FAERS Safety Report 7466482-6 (Version None)
Quarter: 2011Q2

REPORT INFORMATION
  Report Type: 
  Country: None (occurrence: None)
  Receive Date: 20110509
  Receipt Date: 20100823
  Transmission Date: 20111010
  Serious: No
  Sender: FDA-Public Use
  Company Number: US-ALEXION-A201001054

PATIENT
  Sex: Female

DRUGS (6)
  1. MULTI-VITAMINS [Concomitant]
     Indication: VITAMIN SUPPLEMENTATION
     Dosage: 1 TAB
     Route: 048
  2. AMBIEN [Concomitant]
     Indication: SLEEP DISORDER
     Dosage: 10 MG, PRN
     Route: 048
  3. PRILOSEC [Concomitant]
     Dosage: 20 MG, PRN
     Route: 048
  4. FLONASE [Concomitant]
     Dosage: 2 SPRAYS
     Route: 045
  5. SOLIRIS [Suspect]
     Indication: PAROXYSMAL NOCTURNAL HAEMOGLOBINURIA
     Dosage: 900 MG, Q2W
     Route: 042
  6. BIRTH CONTROL PILL [Concomitant]
     Indication: CONTRACEPTION
     Dosage: 1 TAB
     Route: 048

REACTIONS (4)
  - NASOPHARYNGITIS [None]
  - SPUTUM DISCOLOURED [None]
  - FATIGUE [None]
  - BRONCHITIS [None]
